FAERS Safety Report 5554822-4 (Version None)
Quarter: 2007Q4

REPORT INFORMATION
  Report Type: 
  Country: None (occurrence: None)
  Receive Date: 20071213
  Receipt Date: 20071210
  Transmission Date: 20080405
  Serious: Yes (Hospitalization)
  Sender: FDA-Public Use
  Company Number: US-BRISTOL-MYERS SQUIBB COMPANY-14009591

PATIENT
  Sex: Female

DRUGS (1)
  1. IXEMPRA [Suspect]
     Dosage: 1 DOSAGE FORM=1 DOSE

REACTIONS (1)
  - PANCREATITIS [None]
